FAERS Safety Report 12607964 (Version 1)
Quarter: 2020Q3

REPORT INFORMATION
  Report Type: Spontaneous
  Country: TR (occurrence: TR)
  Receive Date: 20160729
  Receipt Date: 20160729
  Transmission Date: 20201105
  Serious: Yes (Other)
  Sender: FDA-Public Use
  Company Number: PHHY2016TR102248

PATIENT
  Age: 29 Year
  Sex: Male

DRUGS (1)
  1. PASIREOTIDE. [Suspect]
     Active Substance: PASIREOTIDE
     Indication: PITUITARY-DEPENDENT CUSHING^S SYNDROME
     Dosage: UNK
     Route: 065

REACTIONS (2)
  - Neoplasm recurrence [Recovered/Resolved]
  - Eyelid ptosis [Unknown]
